FAERS Safety Report 9448346 (Version 2)
Quarter: 2013Q3

REPORT INFORMATION
  Report Type: Spontaneous
  Country: AU (occurrence: AU)
  Receive Date: 20130808
  Receipt Date: 20130820
  Transmission Date: 20140515
  Serious: Yes (Other)
  Sender: FDA-Public Use
  Company Number: AU-PFIZER INC-2013229164

PATIENT
  Age: 65 Year
  Sex: Female

DRUGS (1)
  1. PREGABALIN [Suspect]
     Dosage: 150 MG, 2X/DAY
     Route: 048
     Dates: start: 20071122, end: 20071218

REACTIONS (1)
  - Drop attacks [Recovered/Resolved]
